FAERS Safety Report 7429187-3 (Version None)
Quarter: 2011Q2

REPORT INFORMATION
  Report Type: 
  Country: None (occurrence: None)
  Receive Date: 20110421
  Receipt Date: 20110411
  Transmission Date: 20111010
  Serious: Yes (Life-Threatening, Hospitalization)
  Sender: FDA-Public Use
  Company Number: GB-SANOFI-AVENTIS-2011SA003797

PATIENT
  Age: 58 Year
  Sex: Male
  Weight: 92.5 kg

DRUGS (10)
  1. LATANOPROST [Concomitant]
     Indication: GLAUCOMA
     Dates: start: 20080101
  2. CANDESARTAN [Concomitant]
     Indication: HYPERTENSION
     Route: 048
  3. SIMVASTATIN [Concomitant]
     Indication: HYPERCHOLESTEROLAEMIA
     Route: 048
     Dates: start: 20101119
  4. MULTAQ [Suspect]
     Indication: ATRIAL FIBRILLATION
     Route: 048
     Dates: start: 20101220
  5. WARFARIN [Concomitant]
     Indication: ATRIAL FIBRILLATION
     Route: 048
  6. ADIZEM - SLOW RELEASE [Concomitant]
     Indication: ATRIAL FIBRILLATION
     Route: 048
  7. ADIZEM - SLOW RELEASE [Concomitant]
     Indication: BLOOD PRESSURE
     Route: 048
  8. VENTOLIN [Concomitant]
     Indication: ASTHMA
     Dates: start: 19560101
  9. BECLOMETASONE DIPROPIONATE [Concomitant]
     Indication: ASTHMA
     Dates: start: 19560101
  10. ALVERINE CITRATE [Concomitant]
     Indication: IRRITABLE BOWEL SYNDROME
     Route: 048
     Dates: start: 20100607

REACTIONS (2)
  - LOWER GASTROINTESTINAL HAEMORRHAGE [None]
  - HAEMOGLOBIN DECREASED [None]
